FAERS Safety Report 20199295 (Version 1)
Quarter: 2021Q4

REPORT INFORMATION
  Report Type: Spontaneous
  Country: US (occurrence: None)
  Receive Date: 20211216
  Receipt Date: 20211216
  Transmission Date: 20220303
  Serious: Yes (Death)
  Sender: FDA-Public Use
  Company Number: None

PATIENT
  Age: 94 Year
  Sex: Female
  Weight: 80 kg

DRUGS (1)
  1. WARFARIN [Suspect]
     Active Substance: WARFARIN
     Indication: Atrial fibrillation
     Dosage: FREQUENCY : DAILY;?
     Route: 048
     Dates: start: 20200805, end: 20210524

REACTIONS (2)
  - Subdural haematoma [None]
  - International normalised ratio decreased [None]

NARRATIVE: CASE EVENT DATE: 20210524
